FAERS Safety Report 7969133-7 (Version None)
Quarter: 2011Q4

REPORT INFORMATION
  Report Type: 
  Country: None (occurrence: None)
  Receive Date: 20111209
  Receipt Date: 20111130
  Transmission Date: 20120403
  Serious: Yes (Hospitalization)
  Sender: FDA-Public Use
  Company Number: US-ELI_LILLY_AND_COMPANY-US201112000251

PATIENT
  Age: 57 Year
  Sex: Male

DRUGS (5)
  1. HUMULIN R [Suspect]
     Indication: DIABETES MELLITUS
     Dosage: UNK, PRN
     Dates: start: 20110801
  2. LANTUS [Concomitant]
  3. HUMAN INSULIN [Suspect]
     Dosage: UNK, UNKNOWN
  4. ILETIN [Suspect]
     Dosage: UNK, UNKNOWN
  5. SODIUM BICARBONATE [Concomitant]

REACTIONS (7)
  - RENAL TRANSPLANT [None]
  - PANCREAS TRANSPLANT REJECTION [None]
  - CORONARY ARTERIAL STENT INSERTION [None]
  - PANCREAS TRANSPLANT [None]
  - SKIN LESION [None]
  - SKIN CANCER [None]
  - PANCREATIC DISORDER [None]
